FAERS Safety Report 7959469-8 (Version None)
Quarter: 2011Q4

REPORT INFORMATION
  Report Type: 
  Country: None (occurrence: None)
  Receive Date: 20111206
  Receipt Date: 20111129
  Transmission Date: 20120403
  Serious: Yes (Other)
  Sender: FDA-Public Use
  Company Number: US-PFIZER INC-2011291586

PATIENT
  Sex: Male
  Weight: 98.866 kg

DRUGS (3)
  1. ARTHROTEC [Suspect]
     Dosage: UNK
     Dates: start: 20111120
  2. ARTHROTEC [Suspect]
     Indication: OSTEOARTHRITIS
     Dosage: UNK
     Route: 048
     Dates: start: 20111117, end: 20111101
  3. METFORMIN [Concomitant]
     Indication: TYPE 2 DIABETES MELLITUS
     Dosage: 500 MG, 2X/DAY

REACTIONS (1)
  - CIRCULATORY COLLAPSE [None]
